FAERS Safety Report 9634372 (Version 2)
Quarter: 2013Q4

REPORT INFORMATION
  Report Type: Spontaneous
  Country: IT (occurrence: None)
  Receive Date: 20131017
  Receipt Date: 20131205
  Transmission Date: 20140711
  Serious: Yes (Hospitalization)
  Sender: FDA-Public Use
  Company Number: 2013AP008815

PATIENT
  Age: 26 Year
  Sex: Female

DRUGS (4)
  1. QUETIAPINE FUMARATE [Suspect]
     Indication: DEPRESSIVE SYMPTOM
     Route: 048
     Dates: start: 20130816, end: 20130816
  2. VALIUM [Concomitant]
  3. ARIPIRAZOLE [Suspect]
  4. CANNABIS [Concomitant]

REACTIONS (4)
  - Bradyphrenia [None]
  - Drug abuse [None]
  - Intentional self-injury [None]
  - Miosis [None]
